FAERS Safety Report 5112457-1 (Version None)
Quarter: 2006Q3

REPORT INFORMATION
  Report Type: 
  Country: None (occurrence: None)
  Receive Date: 20060922
  Receipt Date: 20060830
  Transmission Date: 20061208
  Serious: Yes (Other)
  Sender: FDA-Public Use
  Company Number: SEWYE807330AUG06

PATIENT
  Sex: Male

DRUGS (1)
  1. ENBREL [Suspect]
     Indication: PSORIASIS
     Route: 058
     Dates: start: 20060615, end: 20060817

REACTIONS (4)
  - DEEP VEIN THROMBOSIS [None]
  - DERMATITIS EXFOLIATIVE [None]
  - EXFOLIATIVE RASH [None]
  - TOXIC SKIN ERUPTION [None]
